FAERS Safety Report 7601385-5 (Version None)
Quarter: 2011Q3

REPORT INFORMATION
  Report Type: 
  Country: None (occurrence: None)
  Receive Date: 20110711
  Receipt Date: 20110701
  Transmission Date: 20111222
  Serious: Yes (Other)
  Sender: FDA-Public Use
  Company Number: US-ASTRAZENECA-2011SE39596

PATIENT
  Age: 57 Year
  Sex: Female
  Weight: 64 kg

DRUGS (3)
  1. CHANTIX [Suspect]
     Indication: SMOKING CESSATION THERAPY
     Route: 048
     Dates: start: 20110602, end: 20110604
  2. PULMICORT [Suspect]
     Indication: ASTHMA
     Dosage: TWO TIMES A DAY
     Route: 055
     Dates: start: 19990101
  3. COMBIVENT [Concomitant]
     Indication: ASTHMA

REACTIONS (5)
  - AGGRESSION [None]
  - MUSCLE SPASTICITY [None]
  - HOSTILITY [None]
  - RESTLESS LEGS SYNDROME [None]
  - COUGH [None]
